FAERS Safety Report 22110495 (Version 1)
Quarter: 2023Q1

REPORT INFORMATION
  Report Type: Spontaneous
  Country: CZ (occurrence: CZ)
  Receive Date: 20230317
  Receipt Date: 20230317
  Transmission Date: 20230417
  Serious: Yes (Death, Hospitalization, Other)
  Sender: FDA-Public Use
  Company Number: CZ-Orion Corporation ORION PHARMA-MARE2023-0080

PATIENT
  Age: 50 Year
  Sex: Female

DRUGS (6)
  1. TACROLIMUS [Suspect]
     Active Substance: TACROLIMUS
     Indication: Prophylaxis
     Dosage: IMMUNOSUPPRESSIVE THERAPY WAS STOPPED
  2. MYCOPHENOLIC ACID [Suspect]
     Active Substance: MYCOPHENOLIC ACID
     Indication: Prophylaxis
     Dosage: IMMUNOSUPPRESSIVE THERAPY WAS STOPPED
  3. PREDNISONE [Suspect]
     Active Substance: PREDNISONE
     Indication: Prophylaxis
     Dosage: IMMUNOSUPPRESSIVE THERAPY WAS STOPPED
  4. WARFARIN [Suspect]
     Active Substance: WARFARIN
     Indication: Product used for unknown indication
     Dosage: UNK
  5. CALCITRIOL [Suspect]
     Active Substance: CALCITRIOL
     Indication: Hyperparathyroidism secondary
     Dosage: UNK
  6. UNSPECIFIED INGREDIENT [Concomitant]
     Active Substance: UNSPECIFIED INGREDIENT
     Indication: Product used for unknown indication
     Dosage: UNK

REACTIONS (1)
  - Calciphylaxis [Fatal]
